FAERS Safety Report 8859210 (Version 1)
Quarter: 2012Q4

REPORT INFORMATION
  Report Type: 
  Country: US (occurrence: US)
  Receive Date: 20121024
  Receipt Date: 20121024
  Transmission Date: 20130627
  Serious: No
  Sender: FDA-Public Use
  Company Number: US-VERTEX PHARMACEUTICAL INC.-2012-023376

PATIENT
  Age: 27 Year
  Sex: Female
  Weight: 82 kg

DRUGS (6)
  1. VX-950 [Suspect]
     Indication: HEPATITIS C
     Dosage: 750 mg, UNK
     Route: 048
  2. PEGASYS [Suspect]
     Indication: HEPATITIS C
     Dosage: 180 ?g, UNK
  3. RIBAVIRIN [Suspect]
     Indication: HEPATITIS C
     Dosage: 200 mg, UNK
     Route: 048
  4. PRILOSEC                           /00661201/ [Concomitant]
     Dosage: 20 mg, UNK
  5. ZOFRAN                             /00955301/ [Concomitant]
     Dosage: 4 mg, UNK
  6. CYMBALTA [Concomitant]
     Dosage: 30 mg, UNK

REACTIONS (2)
  - Dyspepsia [Unknown]
  - Nausea [Unknown]
